FAERS Safety Report 17668676 (Version 2)
Quarter: 2020Q2

REPORT INFORMATION
  Report Type: Spontaneous
  Country: US (occurrence: US)
  Receive Date: 20200415
  Receipt Date: 20200429
  Transmission Date: 20200713
  Serious: No
  Sender: FDA-Public Use
  Company Number: US-AMGEN-USASP2020060845

PATIENT
  Age: 63 Year
  Sex: Male
  Weight: 93.56 kg

DRUGS (3)
  1. NEULASTA [Suspect]
     Active Substance: PEGFILGRASTIM
     Indication: NEUTROPENIA
     Dosage: 6 MILLIGRAM, Q3WK (FOUR CYCLES)
     Route: 058
     Dates: start: 20200326
  2. NEULASTA [Suspect]
     Active Substance: PEGFILGRASTIM
     Indication: NEUROENDOCRINE CARCINOMA OF THE SKIN
     Dosage: 6 MILLIGRAM, Q3WK (FOUR CYCLES)
     Route: 058
     Dates: start: 20200326
  3. NEULASTA [Suspect]
     Active Substance: PEGFILGRASTIM
     Indication: CHRONIC LYMPHOCYTIC LEUKAEMIA

REACTIONS (1)
  - Device failure [Unknown]

NARRATIVE: CASE EVENT DATE: 20200408
